FAERS Safety Report 8273684-8 (Version None)
Quarter: 2012Q2

REPORT INFORMATION
  Report Type: 
  Country: None (occurrence: None)
  Receive Date: 20120411
  Receipt Date: 20120328
  Transmission Date: 20120825
  Serious: Yes (Other)
  Sender: FDA-Public Use
  Company Number: BD-ASTELLAS-2012US001929

PATIENT
  Sex: Male
  Weight: 10 kg

DRUGS (5)
  1. FOLIC [Concomitant]
     Indication: PRODUCT USED FOR UNKNOWN INDICATION
     Dosage: UNK
     Route: 065
     Dates: start: 20110628, end: 20110628
  2. ALBENDAZOLE [Concomitant]
     Indication: PRODUCT USED FOR UNKNOWN INDICATION
     Dosage: UNK
     Route: 065
     Dates: end: 20110628
  3. AMBISOME [Suspect]
     Indication: VISCERAL LEISHMANIASIS
     Dosage: 50 MG, UNKNOWN/D
     Route: 065
     Dates: start: 20110627
  4. FERROUS SULFATE TAB [Concomitant]
     Indication: PRODUCT USED FOR UNKNOWN INDICATION
     Dosage: UNK
     Route: 065
     Dates: start: 20110628, end: 20110628
  5. MULTI-VITAMINS [Suspect]
     Indication: ANAEMIA
     Dosage: UNK
     Route: 065
     Dates: start: 20110628, end: 20110727

REACTIONS (1)
  - MUSCULAR WEAKNESS [None]
